FAERS Safety Report 8500119-X (Version None)
Quarter: 2012Q3

REPORT INFORMATION
  Report Type: 
  Country: None (occurrence: None)
  Receive Date: 20120710
  Receipt Date: 20120621
  Transmission Date: 20120928
  Serious: No
  Sender: FDA-Public Use
  Company Number: US-ASTRAZENECA-2012SE41772

PATIENT
  Sex: Male

DRUGS (2)
  1. ASPIRIN [Concomitant]
  2. BRILINTA [Suspect]
     Indication: STENT PLACEMENT
     Dosage: BID
     Route: 048

REACTIONS (2)
  - FATIGUE [None]
  - OFF LABEL USE [None]
